FAERS Safety Report 17964142 (Version 1)
Quarter: 2020Q2

REPORT INFORMATION
  Report Type: Spontaneous
  Country: FR (occurrence: FR)
  Receive Date: 20200630
  Receipt Date: 20200630
  Transmission Date: 20200714
  Serious: Yes (Hospitalization)
  Sender: FDA-Public Use
  Company Number: FR-PFIZER INC-2020247470

PATIENT
  Age: 49 Year
  Sex: Male
  Weight: 70 kg

DRUGS (16)
  1. METHYLPREDNISOLONE ACETATE. [Suspect]
     Active Substance: METHYLPREDNISOLONE ACETATE
     Indication: ACUTE MYELOID LEUKAEMIA
     Dosage: 40 MG, CYCLIC
     Route: 037
     Dates: start: 20190425, end: 20190503
  2. METHOTREXATE. [Suspect]
     Active Substance: METHOTREXATE
     Indication: ACUTE MYELOID LEUKAEMIA
     Dosage: 15 MG, CYCLIC
     Route: 037
     Dates: start: 20190425, end: 20190503
  3. ROVAMYCINE [SPIRAMYCIN ADEPATE] [Suspect]
     Active Substance: SPIRAMYCIN ADIPATE
     Indication: INFECTION
     Dosage: 3 DF, 1X/DAY
     Route: 041
     Dates: start: 20190430, end: 20190506
  4. ACICLOVIR [Suspect]
     Active Substance: ACYCLOVIR
     Indication: INFECTION
     Dosage: 750 MG, 1X/DAY
     Route: 041
     Dates: start: 20190429, end: 20190519
  5. AMBISOME [Suspect]
     Active Substance: AMPHOTERICIN B
     Indication: INFECTION
     Dosage: 200 MG, 1X/DAY
     Route: 041
     Dates: start: 20190429, end: 20190520
  6. ALPRAZOLAM. [Suspect]
     Active Substance: ALPRAZOLAM
     Indication: ANXIETY
     Dosage: 0.25 MG, 1X/DAY
     Route: 048
     Dates: start: 20190423, end: 20190510
  7. CYTARABINE. [Suspect]
     Active Substance: CYTARABINE
     Indication: ACUTE MYELOID LEUKAEMIA
     Dosage: 30 MG, CYCLIC
     Route: 037
     Dates: start: 20190425, end: 20190503
  8. CEFTAZIDIME. [Suspect]
     Active Substance: CEFTAZIDIME
     Indication: INFECTION
     Dosage: 6 G, 1X/DAY
     Route: 041
     Dates: start: 20190426, end: 20190513
  9. ALLOPURINOL. [Suspect]
     Active Substance: ALLOPURINOL
     Indication: PROPHYLAXIS
     Dosage: 300 MG, 1X/DAY
     Route: 048
     Dates: start: 20190419, end: 20190502
  10. HYDREA [Suspect]
     Active Substance: HYDROXYUREA
     Indication: ACUTE MYELOID LEUKAEMIA
     Dosage: 2 G, 1X/DAY
     Route: 048
     Dates: start: 20190419, end: 20190425
  11. VANCOMYCINE [VANCOMYCIN] [Suspect]
     Active Substance: VANCOMYCIN
     Indication: INFECTION
     Dosage: 2500 MG, 1X/DAY
     Route: 041
     Dates: start: 20190425, end: 20190510
  12. RYDAPT [Suspect]
     Active Substance: MIDOSTAURIN
     Indication: ACUTE MYELOID LEUKAEMIA
     Dosage: 100 MG, 1X/DAY
     Route: 048
     Dates: start: 20190502, end: 20190505
  13. CYTARABINE. [Suspect]
     Active Substance: CYTARABINE
     Dosage: 2520 MG, CYCLIC
     Route: 041
     Dates: start: 20190425, end: 20190501
  14. DAUNORUBICINE [Suspect]
     Active Substance: DAUNORUBICIN
     Indication: ACUTE MYELOID LEUKAEMIA
     Dosage: 480 MG, CYCLIC
     Route: 041
     Dates: start: 20190425, end: 20190427
  15. AMIKACINE [AMIKACIN] [Suspect]
     Active Substance: AMIKACIN
     Indication: INFECTION
     Dosage: 1 G, 1X/DAY
     Route: 041
     Dates: start: 20190425, end: 20190427
  16. CEFOTAXIME [Suspect]
     Active Substance: CEFOTAXIME SODIUM
     Indication: INFECTION
     Dosage: 6 G, 1X/DAY
     Route: 041
     Dates: start: 20190422, end: 20190425

REACTIONS (4)
  - Product use in unapproved indication [Unknown]
  - Product use issue [Unknown]
  - Posterior reversible encephalopathy syndrome [Recovered/Resolved with Sequelae]
  - Off label use [Unknown]

NARRATIVE: CASE EVENT DATE: 20190506
